FAERS Safety Report 7395711-2 (Version None)
Quarter: 2011Q2

REPORT INFORMATION
  Report Type: 
  Country: None (occurrence: None)
  Receive Date: 20110405
  Receipt Date: 20110325
  Transmission Date: 20111010
  Serious: Yes (Hospitalization)
  Sender: FDA-Public Use
  Company Number: US-BAXTER-2010BH029584

PATIENT
  Age: 58 Year
  Sex: Female

DRUGS (4)
  1. SIMVASTATIN [Concomitant]
     Route: 048
  2. DIANEAL [Suspect]
     Indication: RENAL FAILURE CHRONIC
     Route: 033
     Dates: start: 20100712, end: 20100101
  3. CARVEDILOL [Concomitant]
     Route: 048
  4. PLAVIX [Concomitant]
     Route: 048

REACTIONS (1)
  - CEREBROVASCULAR ACCIDENT [None]
